FAERS Safety Report 6719931-2 (Version None)
Quarter: 2010Q2

REPORT INFORMATION
  Report Type: 
  Country: None (occurrence: None)
  Receive Date: 20100511
  Receipt Date: 20100507
  Transmission Date: 20101027
  Serious: Yes (Hospitalization)
  Sender: FDA-Public Use
  Company Number: ID-EISAI INC.-E2090-01162-SPO-ID

PATIENT
  Age: 17 Year
  Sex: Male

DRUGS (4)
  1. ZONEGRAN [Suspect]
     Indication: SUPPLEMENTATION THERAPY
     Dosage: UNKNOWN
     Route: 048
     Dates: start: 20100301
  2. CARBAMAZEPINE [Concomitant]
     Dates: start: 20080101
  3. PHENYTOIN [Concomitant]
     Dates: start: 20080101
  4. HALOPERIDOL [Concomitant]

REACTIONS (1)
  - STEVENS-JOHNSON SYNDROME [None]
